FAERS Safety Report 8446901-9 (Version None)
Quarter: 2012Q2

REPORT INFORMATION
  Report Type: 
  Country: None (occurrence: None)
  Receive Date: 20120323
  Receipt Date: 20111223
  Transmission Date: 20120825
  Serious: Yes (Hospitalization, Other)
  Sender: FDA-Public Use
  Company Number: 163-21880-11091038

PATIENT
  Age: 46 Year
  Sex: Male
  Weight: 79.3795 kg

DRUGS (7)
  1. REVLIMID [Suspect]
     Indication: PRODUCT USED FOR UNKNOWN INDICATION
     Dosage: 25 MG, QD X 21 DAYS, 7 DAYS OFF, PO, 15 MG, QD X 21 DAYS, PO
     Route: 048
     Dates: start: 20110705, end: 20110828
  2. REVLIMID [Suspect]
     Indication: PRODUCT USED FOR UNKNOWN INDICATION
     Dosage: 25 MG, QD X 21 DAYS, 7 DAYS OFF, PO, 15 MG, QD X 21 DAYS, PO
     Route: 048
     Dates: start: 20110906
  3. MAGNESIUM (MAGNESIUM) [Concomitant]
  4. ZOMETA [Suspect]
     Indication: PRODUCT USED FOR UNKNOWN INDICATION
     Dosage: INJ
  5. SYNTHROID [Concomitant]
  6. ASPIRIN [Concomitant]
  7. DEXAMETHASONE [Concomitant]

REACTIONS (3)
  - BRADYCARDIA [None]
  - HYPOCALCAEMIA [None]
  - SYNCOPE [None]
